FAERS Safety Report 15566560 (Version 1)
Quarter: 2018Q4

REPORT INFORMATION
  Report Type: Report from Study
  Country: DE (occurrence: DE)
  Receive Date: 20181030
  Receipt Date: 20181030
  Transmission Date: 20190205
  Serious: Yes (Death, Life-Threatening, Hospitalization)
  Sender: FDA-Public Use
  Company Number: DE-TEVA-2018-DE-970214

PATIENT
  Age: 68 Year
  Sex: Male

DRUGS (6)
  1. URIPURINOL [Concomitant]
     Dosage: DOSING STATED AS 1/2-0-0-0.
     Route: 065
  2. DIGITOXIN [Concomitant]
     Active Substance: DIGITOXIN
     Dosage: DOSING STATED AS 1-0-0-0.
     Route: 065
  3. NITROLINGUAL [Concomitant]
     Active Substance: NITROGLYCERIN
     Route: 048
  4. PENTALONG [Concomitant]
     Active Substance: PENTAERYTHRITOL TETRANITRATE
     Dosage: 80 MILLIGRAM DAILY; DOSING STATED AS 1-0-0-0.
     Route: 048
  5. CARVEDILOL. [Suspect]
     Active Substance: CARVEDILOL
     Indication: CARDIAC FAILURE CHRONIC
     Dosage: DOSING STATED AS 1-0-0-2.
     Route: 048
     Dates: start: 20030527
  6. ASPIRIN. [Concomitant]
     Active Substance: ASPIRIN
     Dosage: 100 MILLIGRAM DAILY; DRUG NAME REPORTED AS ASS STADA. DOSING STATED AS 1-0-0-0.
     Route: 048

REACTIONS (1)
  - Lung neoplasm malignant [Fatal]
